FAERS Safety Report 8785622 (Version 1)
Quarter: 2012Q4

REPORT INFORMATION
  Report Type: Spontaneous
  Country: US (occurrence: None)
  Receive Date: 20120904
  Receipt Date: 20120904
  Transmission Date: 20130627
  Serious: Yes (Hospitalization)
  Sender: FDA-Public Use
  Company Number: 110414-000086

PATIENT
  Age: 28 Year
  Sex: Female

DRUGS (2)
  1. PROACTIV CLEANSER [Suspect]
     Indication: ACNE
     Route: 004
     Dates: start: 20110221, end: 20110224
  2. REPAIRING TREATMENT [Suspect]
     Route: 004
     Dates: start: 20110221, end: 20110224

REACTIONS (3)
  - Local swelling [None]
  - Swelling face [None]
  - Eye swelling [None]
